FAERS Safety Report 11803949 (Version 1)
Quarter: 2015Q4

REPORT INFORMATION
  Report Type: Spontaneous
  Country: US (occurrence: US)
  Receive Date: 20151204
  Receipt Date: 20151204
  Transmission Date: 20160305
  Serious: Yes (Other)
  Sender: FDA-Public Use
  Company Number: US-ENDO PHARMACEUTICALS INC.-2015-002414

PATIENT
  Age: 51 Year
  Sex: Male
  Weight: 75.36 kg

DRUGS (2)
  1. ANDROGEL [Suspect]
     Active Substance: TESTOSTERONE
     Indication: ANDROGEN REPLACEMENT THERAPY
     Route: 065
     Dates: start: 2013, end: 2014
  2. TESTIM [Suspect]
     Active Substance: TESTOSTERONE
     Indication: ANDROGEN REPLACEMENT THERAPY
     Route: 062
     Dates: start: 2012, end: 2014

REACTIONS (15)
  - Deep vein thrombosis [Unknown]
  - Lung disorder [None]
  - Pulmonary mass [None]
  - Insomnia [None]
  - Anxiety [None]
  - Treatment noncompliance [None]
  - Depressed mood [None]
  - Legal problem [None]
  - Pulmonary embolism [Unknown]
  - Lung neoplasm [Unknown]
  - Inflammation [None]
  - Psychotic disorder [None]
  - No therapeutic response [None]
  - Emphysema [None]
  - Nightmare [None]

NARRATIVE: CASE EVENT DATE: 20130928
